FAERS Safety Report 7978984-4 (Version None)
Quarter: 2011Q4

REPORT INFORMATION
  Report Type: 
  Country: None (occurrence: None)
  Receive Date: 20111214
  Receipt Date: 20111209
  Transmission Date: 20120403
  Serious: Yes (Congenital Anomaly, Other)
  Sender: FDA-Public Use
  Company Number: US-PFIZER INC-2011159746

PATIENT
  Sex: Female
  Weight: 1.8 kg

DRUGS (3)
  1. ZOLOFT [Suspect]
     Indication: ANXIETY
     Dosage: 25 MG, 1X/DAY
     Route: 064
     Dates: start: 20040811
  2. METRONIDAZOLE [Concomitant]
     Dosage: 25 MG, UNK
     Route: 064
     Dates: start: 20041101
  3. ZOLOFT [Suspect]
     Dosage: 50 MG, UNK
     Route: 064
     Dates: start: 20040827

REACTIONS (5)
  - TALIPES [None]
  - MATERNAL EXPOSURE TIMING UNSPECIFIED [None]
  - KNEE DEFORMITY [None]
  - TENDINOUS CONTRACTURE [None]
  - TIBIAL TORSION [None]
